FAERS Safety Report 8121422-1 (Version None)
Quarter: 2012Q1

REPORT INFORMATION
  Report Type: 
  Country: None (occurrence: None)
  Receive Date: 20120203
  Receipt Date: 20120125
  Transmission Date: 20120608
  Serious: Yes (Hospitalization)
  Sender: FDA-Public Use
  Company Number: TCI2012A00329

PATIENT
  Age: 70 Year
  Sex: Male

DRUGS (5)
  1. LANTUS [Concomitant]
  2. JANUVIA [Concomitant]
  3. RHEUMATREX [Concomitant]
  4. PREDNISOLONE [Concomitant]
  5. ACTOS [Suspect]
     Indication: TYPE 2 DIABETES MELLITUS
     Dosage: 15  MG (15 MG,1 D) PER ORAL
     Route: 048
     Dates: start: 20110701, end: 20120101

REACTIONS (2)
  - BLOOD LACTATE DEHYDROGENASE INCREASED [None]
  - BLADDER CANCER [None]
